FAERS Safety Report 17445752 (Version 3)
Quarter: 2020Q1

REPORT INFORMATION
  Report Type: Spontaneous
  Country: FR (occurrence: FR)
  Receive Date: 20200221
  Receipt Date: 20200225
  Transmission Date: 20200409
  Serious: Yes (Other)
  Sender: FDA-Public Use
  Company Number: FR-PFIZER INC-2020068247

PATIENT
  Age: 65 Year
  Sex: Male

DRUGS (5)
  1. RALTITREXED [Concomitant]
     Active Substance: RALTITREXED
     Indication: COLORECTAL CANCER METASTATIC
     Dosage: 2 MG/M2, CYCLIC (9 CYCLES, EVERY 15 DAYS)
     Dates: start: 200111, end: 200203
  2. OXALIPLATIN. [Suspect]
     Active Substance: OXALIPLATIN
     Indication: COLORECTAL CANCER METASTATIC
     Dosage: 85 MG/M2, CYCLIC (9 CYCLES, EVERY 15 DAYS)
     Dates: start: 200111, end: 200203
  3. OXALIPLATIN. [Suspect]
     Active Substance: OXALIPLATIN
     Indication: METASTASES TO LIVER
  4. RALTITREXED [Concomitant]
     Active Substance: RALTITREXED
     Indication: METASTASES TO LIVER
     Dosage: UNK
  5. IRINOTECAN [Concomitant]
     Active Substance: IRINOTECAN
     Indication: METASTASES TO LIVER
     Dosage: UNK

REACTIONS (1)
  - Neurotoxicity [Not Recovered/Not Resolved]
